FAERS Safety Report 5347850-5 (Version None)
Quarter: 2007Q2

REPORT INFORMATION
  Report Type: 
  Country: None (occurrence: None)
  Receive Date: 20070606
  Receipt Date: 20070525
  Transmission Date: 20071010
  Serious: Yes (Other)
  Sender: FDA-Public Use
  Company Number: US-ROCHE-479475

PATIENT
  Age: 32 Year
  Sex: Female
  Weight: 65.3 kg

DRUGS (7)
  1. ACCUTANE [Suspect]
     Indication: ACNE
     Route: 048
     Dates: start: 19980326, end: 19980911
  2. ACCUTANE [Suspect]
     Route: 048
     Dates: start: 19830101
  3. CLINDAMYCIN HCL [Concomitant]
     Route: 048
     Dates: start: 19980811
  4. MINOCIN [Concomitant]
  5. TEMOVATE [Concomitant]
     Route: 061
     Dates: start: 19980530
  6. AVITA CREAM [Concomitant]
     Indication: ECZEMA
     Route: 061
     Dates: start: 19980827
  7. AQUAPHOR [Concomitant]
     Dates: start: 19980429

REACTIONS (7)
  - ANXIETY [None]
  - AUTOIMMUNE THYROIDITIS [None]
  - CROHN'S DISEASE [None]
  - DEPRESSION [None]
  - ILEITIS [None]
  - INFLAMMATORY BOWEL DISEASE [None]
  - KERATOCONJUNCTIVITIS SICCA [None]
